FAERS Safety Report 25286537 (Version 2)
Quarter: 2025Q3

REPORT INFORMATION
  Report Type: Spontaneous
  Country: US (occurrence: US)
  Receive Date: 20250509
  Receipt Date: 20250701
  Transmission Date: 20251021
  Serious: Yes (Other)
  Sender: TAKEDA
  Company Number: US-TAKEDA-2025TUS043183

PATIENT
  Sex: Female
  Weight: 59 kg

DRUGS (3)
  1. CUVITRU [Suspect]
     Active Substance: HUMAN IMMUNOGLOBULIN G
     Indication: Decreased immune responsiveness
     Dosage: 10 GRAM, 1/WEEK
     Dates: start: 20241208, end: 20250321
  2. ACYCLOVIR [Concomitant]
     Active Substance: ACYCLOVIR
  3. MESTINON [Concomitant]
     Active Substance: PYRIDOSTIGMINE BROMIDE
     Indication: Myasthenia gravis

REACTIONS (4)
  - Pneumonia [Unknown]
  - Productive cough [Not Recovered/Not Resolved]
  - Obstruction [Not Recovered/Not Resolved]
  - Bronchial secretion retention [Not Recovered/Not Resolved]
